FAERS Safety Report 23683813 (Version 3)
Quarter: 2024Q2

REPORT INFORMATION
  Report Type: Spontaneous
  Country: SK (occurrence: SK)
  Receive Date: 20240328
  Receipt Date: 20240424
  Transmission Date: 20240716
  Serious: Yes (Hospitalization, Other)
  Sender: FDA-Public Use
  Company Number: SK-Gedeon Richter Plc.-2024_GR_003085

PATIENT
  Sex: Female
  Weight: 70 kg

DRUGS (1)
  1. LEVONORGESTREL [Suspect]
     Active Substance: LEVONORGESTREL
     Indication: Product used for unknown indication
     Dosage: TIME INTERVAL: AS NECESSARY: 52 MG SINGLE, AT AN INITIAL RELEASE RATE OF 20 MICROGRAMS PER 24 HOURS
     Route: 015
     Dates: start: 20220907, end: 20231108

REACTIONS (6)
  - Pregnancy on contraceptive [Unknown]
  - Drug ineffective [Unknown]
  - Maternal exposure during pregnancy [Unknown]
  - Genital haemorrhage [Unknown]
  - Inability to afford medication [Unknown]
  - Abortion induced [Unknown]

NARRATIVE: CASE EVENT DATE: 20230101
